FAERS Safety Report 4447510-9 (Version None)
Quarter: 2004Q3

REPORT INFORMATION
  Report Type: 
  Country: None (occurrence: None)
  Receive Date: 20040823
  Receipt Date: 20040517
  Transmission Date: 20050211
  Serious: No
  Sender: FDA-Public Use
  Company Number: PHEH2004US05776

PATIENT

DRUGS (1)
  1. ZELNORM [Suspect]

REACTIONS (1)
  - UNEXPECTED THERAPEUTIC DRUG EFFECT [None]
